FAERS Safety Report 7433380-3 (Version None)
Quarter: 2011Q2

REPORT INFORMATION
  Report Type: 
  Country: None (occurrence: None)
  Receive Date: 20110415
  Receipt Date: 20110401
  Transmission Date: 20111010
  Serious: Yes (Death)
  Sender: FDA-Public Use
  Company Number: 030628

PATIENT

DRUGS (1)
  1. LEVETIRACETAM [Suspect]
     Indication: EPILEPSY
     Dosage: (2000 TRANSPLACENTAL), (DOSE CHANGED TRANSPLACENTAL)
     Route: 064

REACTIONS (2)
  - DEATH NEONATAL [None]
  - MATERNAL DRUGS AFFECTING FOETUS [None]
